FAERS Safety Report 9331066 (Version 1)
Quarter: 2013Q2

REPORT INFORMATION
  Report Type: Spontaneous
  Country: FR (occurrence: FR)
  Receive Date: 20130605
  Receipt Date: 20130605
  Transmission Date: 20140414
  Serious: Yes (Hospitalization)
  Sender: FDA-Public Use
  Company Number: FR-BRISTOL-MYERS SQUIBB COMPANY-18970863

PATIENT
  Age: 55 Year
  Sex: Male

DRUGS (10)
  1. COUMADINE [Suspect]
     Indication: PHLEBITIS
     Route: 048
     Dates: start: 20110111
  2. PROGRAF [Suspect]
     Dosage: 1 MG IN MORNING, 0.5MG IN EVENING
     Dates: start: 201204
  3. CELLCEPT [Suspect]
     Dosage: 1 IN MORNING AND 1 IN EVENING
     Dates: start: 201204
  4. FUROSEMIDE [Suspect]
     Dates: start: 201204
  5. ALFUZOSIN [Suspect]
     Dosage: ALFUZOSIN SR
     Dates: start: 201204
  6. CIALIS [Suspect]
     Dates: start: 201204
  7. TRAMADOL [Suspect]
     Dates: start: 201204
  8. ATARAX [Suspect]
     Dosage: 2 IN THE EVENING
     Dates: start: 201204
  9. IMOVANE [Suspect]
     Dosage: AT BED TIME
     Dates: start: 201204
  10. BROMAZEPAM [Suspect]
     Dosage: AT BEDTIME
     Dates: start: 201204

REACTIONS (2)
  - Cholestasis [Unknown]
  - Cell death [Unknown]
